FAERS Safety Report 12155471 (Version 2)
Quarter: 2016Q2

REPORT INFORMATION
  Report Type: Spontaneous
  Country: US (occurrence: US)
  Receive Date: 20160307
  Receipt Date: 20160415
  Transmission Date: 20160815
  Serious: Yes (Other)
  Sender: FDA-Public Use
  Company Number: US-ASTELLAS-2016US006489

PATIENT
  Age: 82 Year
  Sex: Female

DRUGS (1)
  1. VESICARE [Suspect]
     Active Substance: SOLIFENACIN SUCCINATE
     Indication: HYPERTONIC BLADDER
     Dosage: 5 MG, TOTAL DOSE (TOOK ONLY 1 PILL)
     Route: 065

REACTIONS (3)
  - Secretion discharge [Recovering/Resolving]
  - Vomiting [Recovering/Resolving]
  - Haemoptysis [Recovering/Resolving]
